FAERS Safety Report 8190812-3 (Version None)
Quarter: 2012Q1

REPORT INFORMATION
  Report Type: 
  Country: None (occurrence: None)
  Receive Date: 20120221
  Receipt Date: 20111128
  Transmission Date: 20120608
  Serious: No
  Sender: FDA-Public Use
  Company Number: 1000025822

PATIENT
  Age: 47 Year
  Sex: Female

DRUGS (7)
  1. VIIBRYD [Suspect]
     Indication: DEPRESSION
     Dosage: 10 MG (10 MG, 1 IN 1 D), ORAL 20 MG (20 MG, 1 IN 1 D), ORAL 40 MG (40 MG, 1 IN 1 D), ORAL
     Route: 048
     Dates: start: 20111101, end: 20111101
  2. VIIBRYD [Suspect]
     Indication: ANXIETY
     Dosage: 10 MG (10 MG, 1 IN 1 D), ORAL 20 MG (20 MG, 1 IN 1 D), ORAL 40 MG (40 MG, 1 IN 1 D), ORAL
     Route: 048
     Dates: start: 20111101, end: 20111101
  3. VIIBRYD [Suspect]
     Indication: DEPRESSION
     Dosage: 10 MG (10 MG, 1 IN 1 D), ORAL 20 MG (20 MG, 1 IN 1 D), ORAL 40 MG (40 MG, 1 IN 1 D), ORAL
     Route: 048
     Dates: start: 20111001, end: 20111101
  4. VIIBRYD [Suspect]
     Indication: ANXIETY
     Dosage: 10 MG (10 MG, 1 IN 1 D), ORAL 20 MG (20 MG, 1 IN 1 D), ORAL 40 MG (40 MG, 1 IN 1 D), ORAL
     Route: 048
     Dates: start: 20111001, end: 20111101
  5. VIIBRYD [Suspect]
     Indication: DEPRESSION
     Dosage: 10 MG (10 MG, 1 IN 1 D), ORAL 20 MG (20 MG, 1 IN 1 D), ORAL 40 MG (40 MG, 1 IN 1 D), ORAL
     Route: 048
     Dates: start: 20111101
  6. VIIBRYD [Suspect]
     Indication: ANXIETY
     Dosage: 10 MG (10 MG, 1 IN 1 D), ORAL 20 MG (20 MG, 1 IN 1 D), ORAL 40 MG (40 MG, 1 IN 1 D), ORAL
     Route: 048
     Dates: start: 20111101
  7. ARMOUR THYROID (THYROID) (THYROID) [Concomitant]

REACTIONS (2)
  - CONSTIPATION [None]
  - DYSPEPSIA [None]
